FAERS Safety Report 8067003-X (Version None)
Quarter: 2012Q1

REPORT INFORMATION
  Report Type: 
  Country: None (occurrence: None)
  Receive Date: 20120124
  Receipt Date: 20120120
  Transmission Date: 20120608
  Serious: Yes (Other)
  Sender: FDA-Public Use
  Company Number: US-MERCK-1103USA03929

PATIENT
  Age: 59 Year
  Sex: Female
  Weight: 57 kg

DRUGS (8)
  1. CALCIUM (UNSPECIFIED) AND VITAMIN D (UNSPECIFIED) [Concomitant]
     Route: 048
     Dates: start: 19900101
  2. FORTEO [Suspect]
     Route: 065
     Dates: start: 20100301
  3. FOSAMAX [Suspect]
     Indication: OSTEOPOROSIS
     Route: 048
     Dates: start: 20030129, end: 20100101
  4. FOSAMAX PLUS D [Suspect]
     Indication: OSTEOPENIA
     Route: 048
     Dates: start: 20050928, end: 20091112
  5. FOSAMAX [Suspect]
     Route: 048
     Dates: start: 20080508, end: 20080612
  6. FOSAMAX [Suspect]
     Indication: OSTEOPENIA
     Route: 048
     Dates: start: 20030129, end: 20100101
  7. FOSAMAX [Suspect]
     Route: 048
     Dates: start: 20040819, end: 20050908
  8. FOSAMAX [Suspect]
     Route: 048
     Dates: start: 20040819, end: 20050908

REACTIONS (17)
  - DEVICE FAILURE [None]
  - VITAMIN D DEFICIENCY [None]
  - FOOT FRACTURE [None]
  - FEMUR FRACTURE [None]
  - FRACTURE NONUNION [None]
  - TOOTH INFECTION [None]
  - MUSCLE SPASMS [None]
  - ADVERSE DRUG REACTION [None]
  - LIMB ASYMMETRY [None]
  - BUNION [None]
  - OSTEOARTHRITIS [None]
  - CALCIUM DEFICIENCY [None]
  - FOOT DEFORMITY [None]
  - NOCTURIA [None]
  - ADVERSE EVENT [None]
  - BREAST CYST [None]
  - TREATMENT NONCOMPLIANCE [None]
